FAERS Safety Report 17716176 (Version 5)
Quarter: 2023Q4

REPORT INFORMATION
  Report Type: Other
  Country: US (occurrence: None)
  Receive Date: 20200428
  Receipt Date: 20231027
  Transmission Date: 20240110
  Serious: Yes (Hospitalization)
  Sender: FDA-Public Use
  Company Number: US-ROCHE-2576472

PATIENT
  Age: 67 Year
  Sex: Female
  Weight: 49.94 kg

DRUGS (19)
  1. OCREVUS [Suspect]
     Active Substance: OCRELIZUMAB
     Indication: Relapsing-remitting multiple sclerosis
     Dosage: THE SUBSEQUENT DOSES OF OCRELIZUMAB: 13/SEP/2019, 28/OCT/2019, 22/MAR/2019, 26/APR/2019?THAN 600 MG
     Route: 042
  2. LIPITOR [Concomitant]
     Active Substance: ATORVASTATIN CALCIUM
  3. LOPRESSOR [Concomitant]
     Active Substance: METOPROLOL TARTRATE
  4. PLAVIX [Concomitant]
     Active Substance: CLOPIDOGREL BISULFATE
  5. MORNIFLUMATE [Concomitant]
     Active Substance: MORNIFLUMATE
  6. MIRAPEX [Concomitant]
     Active Substance: PRAMIPEXOLE DIHYDROCHLORIDE
  7. ASPIRIN [Concomitant]
     Active Substance: ASPIRIN
  8. ISOSORBIDE MONONITRATE [Concomitant]
     Active Substance: ISOSORBIDE MONONITRATE
  9. LAMICTAL [Concomitant]
     Active Substance: LAMOTRIGINE
  10. LATUDA [Concomitant]
     Active Substance: LURASIDONE HYDROCHLORIDE
  11. SINGULAIR [Concomitant]
     Active Substance: MONTELUKAST SODIUM
  12. ALBUTEROL [Concomitant]
     Active Substance: ALBUTEROL
  13. TEA TREE OIL [Concomitant]
     Active Substance: TEA TREE OIL
  14. COLACE [Concomitant]
     Active Substance: DOCUSATE SODIUM
  15. CALCIUM CITRATE [Concomitant]
     Active Substance: CALCIUM CITRATE
  16. MAGNESIUM [Concomitant]
     Active Substance: MAGNESIUM
  17. FOLIC ACID [Concomitant]
     Active Substance: FOLIC ACID
  18. VITAMIN C [Concomitant]
     Active Substance: ASCORBIC ACID
  19. PROPOFOL [Concomitant]
     Active Substance: PROPOFOL

REACTIONS (12)
  - Intervertebral disc protrusion [Recovered/Resolved]
  - Myocardial infarction [Recovered/Resolved]
  - Arterial occlusive disease [Recovered/Resolved]
  - Blood cholesterol increased [Unknown]
  - Mental impairment [Unknown]
  - Memory impairment [Unknown]
  - Joint dislocation [Unknown]
  - Antibody test negative [Unknown]
  - COVID-19 [Recovered/Resolved]
  - Hair texture abnormal [Unknown]
  - Confusional state [Unknown]
  - Memory impairment [Unknown]

NARRATIVE: CASE EVENT DATE: 20200101
